FAERS Safety Report 7150699-4 (Version None)
Quarter: 2010Q4

REPORT INFORMATION
  Report Type: 
  Country: None (occurrence: None)
  Receive Date: 20101210
  Receipt Date: 20101207
  Transmission Date: 20110411
  Serious: Yes (Other)
  Sender: FDA-Public Use
  Company Number: GB-PFIZER INC-2010167046

PATIENT
  Age: 80 Year
  Sex: Female

DRUGS (1)
  1. ARTHROTEC [Suspect]
     Indication: OSTEOARTHRITIS
     Dosage: 75 MG, UNK

REACTIONS (3)
  - DEHYDRATION [None]
  - MENTAL IMPAIRMENT [None]
  - OVERDOSE [None]
